FAERS Safety Report 4316871-3 (Version None)
Quarter: 2004Q1

REPORT INFORMATION
  Report Type: 
  Country: None (occurrence: None)
  Receive Date: 20040309
  Receipt Date: 20031203
  Transmission Date: 20041129
  Serious: Yes (Hospitalization)
  Sender: FDA-Public Use
  Company Number: F03200400001

PATIENT
  Age: 66 Year
  Sex: Female
  Weight: 50.8029 kg

DRUGS (2)
  1. ELOXATIN [Suspect]
     Indication: PANCREATIC CARCINOMA
     Dosage: 75 MG/M2 Q3W - INTRAVENOUS NOS
     Route: 042
     Dates: start: 20031123, end: 20031123
  2. DOCETAXEL - SOLUTION [Suspect]
     Indication: PANCREATIC CARCINOMA
     Dosage: 35 MG/M2 Q2W - INTRAVENOUS NOS
     Route: 042
     Dates: start: 20031130, end: 20031130

REACTIONS (2)
  - PNEUMONIA [None]
  - PYREXIA [None]
